FAERS Safety Report 10530043 (Version 1)
Quarter: 2014Q4

REPORT INFORMATION
  Report Type: Spontaneous
  Country: US (occurrence: None)
  Receive Date: 20141020
  Receipt Date: 20141020
  Transmission Date: 20150528
  Serious: Yes (Death)
  Sender: FDA-Public Use
  Company Number: None

PATIENT
  Age: 72 Year
  Sex: Male
  Weight: 97 kg

DRUGS (25)
  1. ACETAMINOPHEN. [Concomitant]
     Active Substance: ACETAMINOPHEN
  2. MAGNESIUM SULFATE. [Concomitant]
     Active Substance: MAGNESIUM SULFATE
  3. TRAZODONE [Concomitant]
     Active Substance: TRAZODONE HYDROCHLORIDE
  4. DAUNORUBICIN [Suspect]
     Active Substance: DAUNORUBICIN
     Dates: end: 20141011
  5. ATROVENT [Concomitant]
     Active Substance: IPRATROPIUM BROMIDE
  6. CEFEPIME [Concomitant]
     Active Substance: CEFEPIME\CEFEPIME HYDROCHLORIDE
  7. PREDNISONE. [Concomitant]
     Active Substance: PREDNISONE
  8. TORADOL [Concomitant]
     Active Substance: KETOROLAC TROMETHAMINE
  9. ZOFRAN [Concomitant]
     Active Substance: ONDANSETRON HYDROCHLORIDE
  10. CALCIUM GLUCONATE. [Concomitant]
     Active Substance: CALCIUM GLUCONATE
  11. DIPHENHYDRAMINE [Concomitant]
     Active Substance: DIPHENHYDRAMINE
  12. ETOMIDATE. [Concomitant]
     Active Substance: ETOMIDATE
  13. MAALOX ANTACID [Concomitant]
     Active Substance: ALUMINUM HYDROXIDE\DIMETHICONE\MAGNESIUM HYDROXIDE
  14. NYSTATIN. [Concomitant]
     Active Substance: NYSTATIN
  15. CYTARABINE. [Suspect]
     Active Substance: CYTARABINE
     Dates: end: 20141011
  16. PEPCID [Concomitant]
     Active Substance: FAMOTIDINE
  17. VANCOMYCIN [Concomitant]
     Active Substance: VANCOMYCIN
  18. ACYCLOVIR. [Concomitant]
     Active Substance: ACYCLOVIR
  19. CALCIUM CARBONATE. [Concomitant]
     Active Substance: CALCIUM CARBONATE
  20. COLACE [Concomitant]
     Active Substance: DOCUSATE SODIUM
  21. FENTANYL. [Concomitant]
     Active Substance: FENTANYL
  22. MORPHINE [Concomitant]
     Active Substance: MORPHINE
  23. ALLOPURINOL. [Concomitant]
     Active Substance: ALLOPURINOL
  24. LASIX [Concomitant]
     Active Substance: FUROSEMIDE
  25. NALAXONE [Concomitant]

REACTIONS (4)
  - Abdominal pain upper [None]
  - Dyspnoea [None]
  - Chest pain [None]
  - Gastrooesophageal reflux disease [None]

NARRATIVE: CASE EVENT DATE: 20141012
